FAERS Safety Report 8197903-1 (Version None)
Quarter: 2012Q1

REPORT INFORMATION
  Report Type: 
  Country: None (occurrence: None)
  Receive Date: 20120309
  Receipt Date: 20120305
  Transmission Date: 20120608
  Serious: Yes (Other)
  Sender: FDA-Public Use
  Company Number: US-BAYER-2012-001849

PATIENT
  Age: 40 Year
  Sex: Female

DRUGS (7)
  1. GABAPENTIN [Concomitant]
     Dosage: 100 MG, UNK
  2. AMITRIPTYLINE HCL [Concomitant]
     Dosage: 25 MG, UNK
  3. BETASERON [Suspect]
     Indication: MULTIPLE SCLEROSIS
     Dosage: 1 ML, QOD
     Route: 058
     Dates: start: 20111001
  4. ALPRAZOLAM [Concomitant]
     Dosage: 0.25 MG, BID
  5. ONDANSETRON [Suspect]
     Indication: GASTRIC INFECTION
  6. EXFORGE [Concomitant]
     Indication: BLOOD PRESSURE ABNORMAL
  7. PHENTERMINE [Concomitant]
     Dosage: 37.5 MG, QOD

REACTIONS (12)
  - NAUSEA [None]
  - MYALGIA [None]
  - VOMITING [None]
  - HEADACHE [None]
  - INSOMNIA [None]
  - GASTRIC INFECTION [None]
  - ABDOMINAL DISCOMFORT [None]
  - EATING DISORDER [None]
  - DIZZINESS [None]
  - LIVER DISORDER [None]
  - ABDOMINAL PAIN UPPER [None]
  - MUSCLE SPASMS [None]
